FAERS Safety Report 6620681 (Version 2)
Quarter: 2013Q1

REPORT INFORMATION
  Report Type: Spontaneous
  Country: ES (occurrence: None)
  Receive Date: 20080409
  Receipt Date: 20130118
  Transmission Date: 20140127
  Serious: Yes (Life-Threatening, Other)
  Sender: FDA-Public Use
  Company Number: 2008AP000784

PATIENT
  Age: 37 Year
  Sex: Female

DRUGS (8)
  1. CARBAMAZEPINE [Suspect]
     Dosage: 800 MG; AM; 400 MG; AF; 800 MG; HS
  2. LAMOTRIGINE (LAMOTRIGINE) [Suspect]
     Dosage: 100 MG; Q12H
  3. VENLAFAXINE [Suspect]
     Dosage: 150 MG; QD
  4. PRAVASTATIN [Concomitant]
  5. LEVETIRACETAM [Concomitant]
  6. ALPRAZOLAM (ALPRAZOLAM) [Concomitant]
  7. MIRTAZAPIONE (MIRTAZAPINE) [Concomitant]
  8. PHENOBARBITAL [Concomitant]

REACTIONS (9)
  - DRUG INTERACTION [None]
  - SYNCOPE [None]
  - HYPONATRAEMIA [None]
  - HYPERTONIA [None]
  - HYPERHIDROSIS [None]
  - FEELING COLD [None]
  - ELECTROCARDIOGRAM QT PROLONGED [None]
  - INAPPROPRIATE ANTIDIURETIC HORMONE SECRETION [None]
  - DEPRESSION [None]
